FAERS Safety Report 8584068 (Version 4)
Quarter: 2013Q2

REPORT INFORMATION
  Report Type: Spontaneous
  Country: US (occurrence: US)
  Receive Date: 20120529
  Receipt Date: 20130422
  Transmission Date: 20140414
  Serious: Yes (Other)
  Sender: FDA-Public Use
  Company Number: US-PFIZER INC-2012127261

PATIENT
  Age: 52 Year
  Sex: Female
  Weight: 70.75 kg

DRUGS (2)
  1. LYRICA [Suspect]
     Indication: PAIN
     Dosage: 75 MG, 3X/DAY
     Route: 048
     Dates: start: 2007, end: 2007
  2. LYRICA [Suspect]
     Indication: NEURALGIA
     Dosage: 150 MG, 2X/DAY
     Route: 048
     Dates: start: 2007

REACTIONS (3)
  - Cataract [Not Recovered/Not Resolved]
  - Pain [Not Recovered/Not Resolved]
  - Visual impairment [Unknown]
